FAERS Safety Report 5815586-X (Version None)
Quarter: 2008Q3

REPORT INFORMATION
  Report Type: 
  Country: None (occurrence: None)
  Receive Date: 20080718
  Receipt Date: 20080708
  Transmission Date: 20090109
  Serious: Yes (Hospitalization)
  Sender: FDA-Public Use
  Company Number: US-AMGEN-US293173

PATIENT
  Age: 84 Year
  Sex: Male

DRUGS (7)
  1. SENSIPAR [Suspect]
     Indication: PARATHYROID TUMOUR MALIGNANT
     Route: 065
     Dates: start: 20060101
  2. PLAVIX [Concomitant]
     Route: 065
  3. PRAVACHOL [Concomitant]
     Route: 065
  4. ACTONEL [Concomitant]
     Route: 065
  5. ASPIRIN [Concomitant]
     Route: 065
  6. METOPROLOL TARTRATE [Concomitant]
     Route: 065
  7. FLOMAX [Concomitant]
     Route: 065

REACTIONS (3)
  - BLOOD CALCIUM INCREASED [None]
  - COLITIS ISCHAEMIC [None]
  - UPPER GASTROINTESTINAL HAEMORRHAGE [None]
